FAERS Safety Report 7207020-2 (Version None)
Quarter: 2011Q1

REPORT INFORMATION
  Report Type: 
  Country: None (occurrence: None)
  Receive Date: 20110103
  Receipt Date: 20101224
  Transmission Date: 20110831
  Serious: Yes (Hospitalization, Disabling)
  Sender: FDA-Public Use
  Company Number: B0677625A

PATIENT
  Sex: Female
  Weight: 54 kg

DRUGS (14)
  1. ARRANON [Suspect]
     Dosage: 1500MGM2 PER DAY
     Route: 042
     Dates: start: 20100813, end: 20100817
  2. UNKNOWN DRUG [Concomitant]
     Indication: NEOPLASM MALIGNANT
     Dates: start: 20050101
  3. CYTARABINE [Concomitant]
     Indication: NEOPLASM MALIGNANT
     Route: 042
     Dates: start: 20050101
  4. ETOPOSIDE [Concomitant]
     Indication: NEOPLASM MALIGNANT
     Route: 042
     Dates: start: 20050101
  5. ARRANON [Suspect]
     Dosage: 1500MGM2 PER DAY
     Route: 042
     Dates: start: 20100629, end: 20100703
  6. ALKERAN [Concomitant]
     Indication: NEOPLASM MALIGNANT
     Route: 042
     Dates: start: 20050801
  7. MITOXANTRONE HYDROCHLORIDE [Concomitant]
     Indication: NEOPLASM MALIGNANT
     Route: 042
     Dates: start: 20050101
  8. VINCRISTINE SULFATE [Concomitant]
     Indication: NEOPLASM MALIGNANT
     Route: 042
     Dates: start: 20050101
  9. DECADRON [Concomitant]
     Indication: PROPHYLAXIS
     Dates: start: 20100629, end: 20100703
  10. VINDESINE SULFATE [Concomitant]
     Indication: NEOPLASM MALIGNANT
     Route: 042
     Dates: start: 20050101
  11. ARRANON [Suspect]
     Dosage: 1500MGM2 PER DAY
     Route: 042
     Dates: start: 20100720, end: 20100724
  12. METHOTREXATE [Concomitant]
     Indication: NEOPLASM MALIGNANT
     Dosage: 15MG PER DAY
     Dates: start: 20100723, end: 20100723
  13. METHOTREXATE [Concomitant]
     Dosage: 15MG PER DAY
     Dates: start: 20100813, end: 20100813
  14. CYLOCIDE [Concomitant]
     Indication: NEOPLASM MALIGNANT
     Dosage: 40MG PER DAY

REACTIONS (3)
  - MYELITIS [None]
  - PERIPHERAL MOTOR NEUROPATHY [None]
  - PERIPHERAL SENSORY NEUROPATHY [None]
